FAERS Safety Report 7653774-0 (Version None)
Quarter: 2011Q3

REPORT INFORMATION
  Report Type: 
  Country: None (occurrence: None)
  Receive Date: 20110803
  Receipt Date: 20110728
  Transmission Date: 20111222
  Serious: Yes (Hospitalization)
  Sender: FDA-Public Use
  Company Number: IT-GLAXOSMITHKLINE-B0733009A

PATIENT
  Sex: Female

DRUGS (5)
  1. ESOMEPRAZOLE MAGNESIUM [Concomitant]
     Indication: PROPHYLAXIS AGAINST GASTROINTESTINAL ULCER
     Dates: start: 20110101, end: 20110701
  2. VASTAREL [Concomitant]
     Indication: CONGESTIVE CARDIOMYOPATHY
     Dates: start: 20090101, end: 20110701
  3. LANOXIN [Suspect]
     Indication: CONGESTIVE CARDIOMYOPATHY
     Route: 048
     Dates: start: 20110625, end: 20110702
  4. LASIX [Concomitant]
     Indication: CONGESTIVE CARDIOMYOPATHY
     Route: 048
     Dates: start: 20090101, end: 20110701
  5. NITRODERM [Concomitant]
     Indication: ACUTE MYOCARDIAL INFARCTION
     Dosage: 15MG PER DAY
     Route: 062
     Dates: start: 20090101, end: 20110701

REACTIONS (5)
  - OVERDOSE [None]
  - VISUAL IMPAIRMENT [None]
  - BLOOD CREATININE INCREASED [None]
  - NAUSEA [None]
  - VOMITING [None]
